FAERS Safety Report 25610426 (Version 3)
Quarter: 2025Q3

REPORT INFORMATION
  Report Type: Other
  Country: CA (occurrence: CA)
  Receive Date: 20250728
  Receipt Date: 20250923
  Transmission Date: 20251021
  Serious: Yes (Other)
  Sender: Atnahs Healthcare
  Company Number: CA-ATNAHS-2025-PMNV-CA000128

PATIENT

DRUGS (7)
  1. ANAPROX [Suspect]
     Active Substance: NAPROXEN SODIUM
     Indication: Chest pain
     Route: 065
  2. BIMEKIZUMAB [Suspect]
     Active Substance: BIMEKIZUMAB
     Indication: Rheumatoid arthritis
     Route: 065
  3. BIMEKIZUMAB [Suspect]
     Active Substance: BIMEKIZUMAB
     Indication: Ankylosing spondylitis
     Route: 058
  4. BIMEKIZUMAB [Suspect]
     Active Substance: BIMEKIZUMAB
     Route: 065
  5. CITALOPRAM [Concomitant]
     Active Substance: CITALOPRAM
     Indication: Product used for unknown indication
     Route: 065
  6. PANTOPRAZOLE [Concomitant]
     Active Substance: PANTOPRAZOLE
     Indication: Chest pain
     Route: 065
  7. MEDROL [Concomitant]
     Active Substance: METHYLPREDNISOLONE
     Indication: Product used for unknown indication
     Route: 065

REACTIONS (5)
  - Chest pain [Not Recovered/Not Resolved]
  - Gastritis [Not Recovered/Not Resolved]
  - Product use in unapproved indication [Not Recovered/Not Resolved]
  - Condition aggravated [Not Recovered/Not Resolved]
  - Drug ineffective [Not Recovered/Not Resolved]
